FAERS Safety Report 13045058 (Version 2)
Quarter: 2016Q4

REPORT INFORMATION
  Report Type: Spontaneous
  Country: US (occurrence: US)
  Receive Date: 20161220
  Receipt Date: 20161228
  Transmission Date: 20170207
  Serious: Yes (Other)
  Sender: FDA-Public Use
  Company Number: US-DRREDDYS-USA/USA/16/0085523

PATIENT
  Sex: Female

DRUGS (1)
  1. ZENATANE [Suspect]
     Active Substance: ISOTRETINOIN
     Indication: ACNE
     Route: 048
     Dates: start: 20160912, end: 20161103

REACTIONS (4)
  - Mood altered [Unknown]
  - Dry mouth [Unknown]
  - Dry eye [Unknown]
  - Epistaxis [Unknown]
